FAERS Safety Report 6515941-9 (Version None)
Quarter: 2009Q4

REPORT INFORMATION
  Report Type: 
  Country: None (occurrence: None)
  Receive Date: 20091223
  Receipt Date: 20090331
  Transmission Date: 20100525
  Serious: No
  Sender: FDA-Public Use
  Company Number: US-ABBOTT-09P-163-0561663-00

PATIENT
  Sex: Male
  Weight: 74.002 kg

DRUGS (1)
  1. LUPRON DEPOT [Suspect]
     Indication: PROSTATE CANCER
     Route: 030
     Dates: start: 20071101

REACTIONS (5)
  - BONE PAIN [None]
  - FALL [None]
  - HYPOAESTHESIA [None]
  - OSTEOPOROSIS [None]
  - WRIST FRACTURE [None]
